FAERS Safety Report 4381372-3 (Version None)
Quarter: 2004Q2

REPORT INFORMATION
  Report Type: 
  Country: None (occurrence: None)
  Receive Date: 20040617
  Receipt Date: 20040608
  Transmission Date: 20050107
  Serious: Yes (Other)
  Sender: FDA-Public Use
  Company Number: 2004UW10912

PATIENT
  Age: 66 Year
  Sex: Female

DRUGS (7)
  1. CRESTOR [Suspect]
     Dosage: 10 MG QD PO
     Route: 048
     Dates: start: 20040119, end: 20040520
  2. PSEUDOEPHEDRINE HYDROCHLORIDE.CHLORPHENAMINE MALEATE. HYOSCINE METHONI [Concomitant]
  3. LISINOPRIL [Concomitant]
  4. GLUCOTROL XL [Concomitant]
  5. INDERAL [Concomitant]
  6. LEXAPRO [Concomitant]
  7. ASPIRIN [Concomitant]

REACTIONS (3)
  - ALANINE AMINOTRANSFERASE INCREASED [None]
  - ASPARTATE AMINOTRANSFERASE INCREASED [None]
  - BLOOD ALKALINE PHOSPHATASE INCREASED [None]
